FAERS Safety Report 17170625 (Version 1)
Quarter: 2019Q4

REPORT INFORMATION
  Report Type: Spontaneous
  Country: PL (occurrence: PL)
  Receive Date: 20191218
  Receipt Date: 20191218
  Transmission Date: 20200122
  Serious: Yes (Other)
  Sender: FDA-Public Use
  Company Number: PL-MYLANLABS-2019M1123395

PATIENT
  Age: 1 Year
  Sex: Male
  Weight: 15 kg

DRUGS (1)
  1. KLACID [Suspect]
     Active Substance: CLARITHROMYCIN
     Indication: BRONCHIAL DISORDER
     Dosage: 2.5 MILLILITER, BID (250 MG / 5 ML)
     Route: 048
     Dates: start: 20160114, end: 20160116

REACTIONS (3)
  - Insomnia [Recovering/Resolving]
  - Aggression [Recovering/Resolving]
  - Crying [Recovering/Resolving]

NARRATIVE: CASE EVENT DATE: 20160116
